FAERS Safety Report 12607427 (Version 1)
Quarter: 2016Q3

REPORT INFORMATION
  Report Type: Spontaneous
  Country: TR (occurrence: TR)
  Receive Date: 20160729
  Receipt Date: 20160729
  Transmission Date: 20161109
  Serious: Yes (Other)
  Sender: FDA-Public Use
  Company Number: TR-PFIZER INC-2016362318

PATIENT
  Sex: Female

DRUGS (3)
  1. LEFLUNOMID [Concomitant]
     Active Substance: LEFLUNOMIDE
  2. DELTACORTRIL [Concomitant]
     Active Substance: PREDNISOLONE
  3. XELJANZ [Suspect]
     Active Substance: TOFACITINIB CITRATE

REACTIONS (1)
  - Myocardial infarction [Unknown]
